FAERS Safety Report 20075141 (Version 3)
Quarter: 2022Q1

REPORT INFORMATION
  Report Type: Report from Study
  Country: US (occurrence: US)
  Receive Date: 20211116
  Receipt Date: 20220110
  Transmission Date: 20220424
  Serious: No
  Sender: FDA-Public Use
  Company Number: US-NOVARTISTESTPH-NVSC2021US261040

PATIENT
  Age: 1 Month
  Sex: Female

DRUGS (1)
  1. ZOLGENSMA [Suspect]
     Active Substance: ONASEMNOGENE ABEPARVOVEC-XIOI
     Indication: Spinal muscular atrophy
     Dosage: UNK, ONCE/SINGLE
     Route: 042
     Dates: start: 20211111, end: 20211111

REACTIONS (3)
  - Hepatic enzyme increased [Unknown]
  - Urine odour abnormal [Unknown]
  - Vomiting [Unknown]

NARRATIVE: CASE EVENT DATE: 20211112
